FAERS Safety Report 12720060 (Version 1)
Quarter: 2016Q3

REPORT INFORMATION
  Report Type: Spontaneous
  Country: AU (occurrence: AU)
  Receive Date: 20160907
  Receipt Date: 20160907
  Transmission Date: 20161109
  Serious: Yes (Other)
  Sender: FDA-Public Use
  Company Number: AU-IPSEN BIOPHARMACEUTICALS, INC.-2016-07288

PATIENT
  Sex: Female

DRUGS (6)
  1. DYSPORT [Suspect]
     Active Substance: ABOBOTULINUMTOXINA
     Indication: SKIN WRINKLING
  2. DYSPORT [Suspect]
     Active Substance: ABOBOTULINUMTOXINA
     Indication: SKIN WRINKLING
     Dosage: 70 IU
     Route: 065
     Dates: start: 20160816, end: 20160816
  3. LUVOX [Concomitant]
     Active Substance: FLUVOXAMINE MALEATE
  4. VITAMIN D [Concomitant]
     Active Substance: CHOLECALCIFEROL
  5. DYSPORT [Suspect]
     Active Substance: ABOBOTULINUMTOXINA
     Indication: PRODUCT USE ISSUE
  6. CALCIUM [Concomitant]
     Active Substance: CALCIUM

REACTIONS (6)
  - Eyelid pain [Not Recovered/Not Resolved]
  - Conjunctival haemorrhage [Recovered/Resolved]
  - Uveitis [Not Recovered/Not Resolved]
  - Head discomfort [Not Recovered/Not Resolved]
  - Pupillary light reflex tests abnormal [Not Recovered/Not Resolved]
  - Dry eye [Not Recovered/Not Resolved]

NARRATIVE: CASE EVENT DATE: 201608
